FAERS Safety Report 18564274 (Version 1)
Quarter: 2020Q4

REPORT INFORMATION
  Report Type: Spontaneous
  Country: US (occurrence: US)
  Receive Date: 20201130
  Receipt Date: 20201130
  Transmission Date: 20210114
  Serious: Yes (Hospitalization)
  Sender: FDA-Public Use
  Company Number: None

PATIENT
  Age: 46 Year
  Sex: Male

DRUGS (1)
  1. STELARA [Suspect]
     Active Substance: USTEKINUMAB
     Indication: CROHN^S DISEASE
     Dosage: OTHER FREQUENCY:ONCE EVERY  EIGHT WEEKS;?
     Route: 058
     Dates: start: 20191022

REACTIONS (3)
  - Coronavirus infection [None]
  - Blood disorder [None]
  - Infection [None]

NARRATIVE: CASE EVENT DATE: 20201030
